FAERS Safety Report 8006396-6 (Version None)
Quarter: 2011Q4

REPORT INFORMATION
  Report Type: 
  Country: None (occurrence: None)
  Receive Date: 20111226
  Receipt Date: 20111220
  Transmission Date: 20120403
  Serious: Yes (Hospitalization)
  Sender: FDA-Public Use
  Company Number: PHHY2011FR111055

PATIENT
  Age: 77 Year
  Sex: Female

DRUGS (8)
  1. ASPIRIN [Concomitant]
     Dosage: 1 DF, QD
  2. VITAMIN D [Concomitant]
     Dosage: UNK
  3. ONBREZ [Suspect]
     Indication: ASTHMA
     Dosage: 150 UG, QD
     Dates: start: 20111129, end: 20111218
  4. CALCIUM [Concomitant]
     Dosage: UNK
  5. ONBREZ [Suspect]
     Indication: COUGH
  6. SYMBICORT [Concomitant]
     Dosage: 200 UG, BID
  7. CRESTOR [Concomitant]
     Dosage: 10 MG, QD
  8. ZOLPIDEM [Concomitant]

REACTIONS (2)
  - CEREBROVASCULAR ACCIDENT [None]
  - ATRIAL FIBRILLATION [None]
